FAERS Safety Report 8203975 (Version 2)
Quarter: 2013Q3

REPORT INFORMATION
  Report Type: Spontaneous
  Country: US (occurrence: US)
  Receive Date: 20111027
  Receipt Date: 20130807
  Transmission Date: 20140515
  Serious: No
  Sender: FDA-Public Use
  Company Number: US-AMGEN-USASP2010003696

PATIENT
  Age: 58 Year
  Sex: Female

DRUGS (2)
  1. ENBREL [Suspect]
     Indication: RHEUMATOID ARTHRITIS
     Dosage: 50 MG, QWK
     Route: 065
     Dates: start: 20090525, end: 20130621
  2. CHANTIX [Suspect]
     Dosage: UNK

REACTIONS (15)
  - Acne [Recovered/Resolved]
  - Scratch [Recovered/Resolved]
  - Swelling face [Recovered/Resolved]
  - Oedema mouth [Recovered/Resolved]
  - Ulcer [Recovered/Resolved]
  - Pain in extremity [Not Recovered/Not Resolved]
  - Arthralgia [Not Recovered/Not Resolved]
  - Back pain [Not Recovered/Not Resolved]
  - Insomnia [Not Recovered/Not Resolved]
  - Pain [Not Recovered/Not Resolved]
  - Joint swelling [Recovered/Resolved]
  - Wound [Unknown]
  - Skin infection [Recovered/Resolved]
  - Herpes zoster [Recovered/Resolved]
  - Influenza [Unknown]
